FAERS Safety Report 5517658-6 (Version None)
Quarter: 2007Q4

REPORT INFORMATION
  Report Type: 
  Country: None (occurrence: None)
  Receive Date: 20071114
  Receipt Date: 20071022
  Transmission Date: 20080405
  Serious: No
  Sender: FDA-Public Use
  Company Number: US-BOEHRINGER INGELHEIM PHARMACEUTICALS, INC.-2007-BP-23134BP

PATIENT
  Sex: Female

DRUGS (1)
  1. MOBIC [Suspect]
     Route: 048
     Dates: start: 20071003, end: 20071006

REACTIONS (5)
  - BURNING SENSATION [None]
  - EYE PAIN [None]
  - LIP DISCOLOURATION [None]
  - LIP SWELLING [None]
  - NAUSEA [None]
